FAERS Safety Report 4327582-2 (Version None)
Quarter: 2004Q1

REPORT INFORMATION
  Report Type: 
  Country: None (occurrence: None)
  Receive Date: 20040325
  Receipt Date: 20040312
  Transmission Date: 20041129
  Serious: Yes (Hospitalization, Disabling)
  Sender: FDA-Public Use
  Company Number: 04P-056-0253471-00

PATIENT
  Age: 46 Year
  Sex: Male
  Weight: 70 kg

DRUGS (4)
  1. NORVIR [Suspect]
     Indication: ACQUIRED IMMUNODEFICIENCY SYNDROME
     Dosage: 2 DOSAGE FORMS, 1 IN 1 D, PER ORAL
     Route: 048
     Dates: start: 20000515
  2. SAQUINAVIR [Suspect]
     Indication: ACQUIRED IMMUNODEFICIENCY SYNDROME
     Dosage: 9 DOSAGE FORMS, 1 IN 1 D, PER ORAL
     Route: 048
     Dates: start: 20000515
  3. NEVIRAPINE [Suspect]
     Indication: ACQUIRED IMMUNODEFICIENCY SYNDROME
     Dosage: 2 DOSAGE FORMS, 1 IN 1 D, PER ORAL
     Route: 048
     Dates: start: 20000515
  4. ZIDOVUDINE W/LAMIVUDINE [Suspect]
     Indication: ACQUIRED IMMUNODEFICIENCY SYNDROME
     Dosage: 2 DOSAGE FORMS, 1 IN 1 D, PER ORAL
     Route: 048
     Dates: start: 20000515

REACTIONS (3)
  - ERECTILE DYSFUNCTION [None]
  - FEMORAL NECK FRACTURE [None]
  - PATHOLOGICAL FRACTURE [None]
